FAERS Safety Report 5327212-7 (Version None)
Quarter: 2007Q2

REPORT INFORMATION
  Report Type: 
  Country: None (occurrence: None)
  Receive Date: 20070511
  Receipt Date: 20070503
  Transmission Date: 20071010
  Serious: Yes (Hospitalization)
  Sender: FDA-Public Use
  Company Number: 2006SP001427

PATIENT
  Age: 54 Year
  Sex: Male

DRUGS (4)
  1. PEG-INTRON [Suspect]
     Indication: HEPATITIS C
     Dosage: 120 MCG; QW; IM
     Route: 030
     Dates: start: 20060616, end: 20060703
  2. REBETOL [Suspect]
     Indication: HEPATITIS C
     Dosage: 800 MG; QD; PO
     Route: 048
     Dates: start: 20060616, end: 20060703
  3. VITAMIN C/00008001/ (CON.) [Concomitant]
  4. MULTIVITAMIN AND MINERAL (CON. ) [Concomitant]

REACTIONS (7)
  - ANAEMIA [None]
  - EFFUSION [None]
  - EMPYEMA [None]
  - HAEMOPTYSIS [None]
  - LOBAR PNEUMONIA [None]
  - NEUTROPENIC SEPSIS [None]
  - THROMBOCYTOPENIA [None]
